FAERS Safety Report 14297387 (Version 1)
Quarter: 2017Q4

REPORT INFORMATION
  Report Type: Spontaneous
  Country: US (occurrence: US)
  Receive Date: 20171218
  Receipt Date: 20171218
  Transmission Date: 20180321
  Serious: No
  Sender: FDA-Public Use
  Company Number: US-BAYER-2017-240888

PATIENT
  Age: 87 Year
  Sex: Female
  Weight: 54.97 kg

DRUGS (1)
  1. MIRALAX [Suspect]
     Active Substance: POLYETHYLENE GLYCOL 3350
     Indication: GASTROINTESTINAL DISORDER
     Dosage: 1 DF, QD
     Route: 048
     Dates: start: 20171209, end: 20171209

REACTIONS (2)
  - Poor quality drug administered [Unknown]
  - Product quality issue [None]

NARRATIVE: CASE EVENT DATE: 20171209
